FAERS Safety Report 9683578 (Version 2)
Quarter: 2014Q1

REPORT INFORMATION
  Report Type: Spontaneous
  Country: US (occurrence: US)
  Receive Date: 20131112
  Receipt Date: 20140107
  Transmission Date: 20141002
  Serious: Yes (Other)
  Sender: FDA-Public Use
  Company Number: US-009507513-1311USA001876

PATIENT
  Sex: Female

DRUGS (7)
  1. PREDNISONE [Suspect]
     Dosage: 10 MG, QD
     Route: 048
  2. NEXIUM [Suspect]
     Dosage: 40 MG, QD
     Route: 048
  3. DIAZEPAM [Suspect]
     Dosage: 5 MG, QD
     Route: 048
  4. CELEBREX [Suspect]
     Indication: OSTEOARTHRITIS
     Dosage: 200 MG, QD
     Dates: start: 20120425, end: 20120530
  5. LIPITOR [Concomitant]
     Dosage: 20 MG, QD
  6. GABAPENTIN [Concomitant]
     Dosage: 300 MG, QD
  7. BENTYL [Concomitant]
     Dosage: 20 MG, PRN

REACTIONS (7)
  - Pancreatitis [Unknown]
  - Cholecystectomy [Unknown]
  - Irritable bowel syndrome [Unknown]
  - Gastric ulcer [Unknown]
  - Hypertension [Unknown]
  - Blood cholesterol increased [Unknown]
  - Inflammation [Unknown]
